FAERS Safety Report 20899271 (Version 3)
Quarter: 2023Q4

REPORT INFORMATION
  Report Type: Other
  Country: JP (occurrence: JP)
  Receive Date: 20220601
  Receipt Date: 20231123
  Transmission Date: 20240110
  Serious: Yes (Hospitalization, Other)
  Sender: FDA-Public Use
  Company Number: JP-CHUGAI-2022019551

PATIENT
  Age: 56 Year
  Sex: Male

DRUGS (2)
  1. ALECENSA [Suspect]
     Active Substance: ALECTINIB HYDROCHLORIDE
     Indication: Non-small cell lung cancer
     Dosage: 300 MILLIGRAM, BID
     Route: 048
     Dates: start: 20220512, end: 20220516
  2. LORLATINIB [Concomitant]
     Active Substance: LORLATINIB

REACTIONS (2)
  - Pulmonary toxicity [Recovered/Resolved]
  - Pulmonary alveolar haemorrhage [Recovered/Resolved]

NARRATIVE: CASE EVENT DATE: 20220516
